FAERS Safety Report 6899345-5 (Version None)
Quarter: 2010Q3

REPORT INFORMATION
  Report Type: 
  Country: None (occurrence: None)
  Receive Date: 20100803
  Receipt Date: 20090407
  Transmission Date: 20110219
  Serious: Yes (Hospitalization, Other)
  Sender: FDA-Public Use
  Company Number: US-PFIZER INC-2009160437

PATIENT
  Sex: Female
  Weight: 49.887 kg

DRUGS (11)
  1. NEURONTIN [Suspect]
     Indication: CONVULSION
  2. NEURONTIN [Suspect]
     Indication: NEUROPATHY PERIPHERAL
  3. GABAPENTIN [Suspect]
     Indication: CONVULSION
  4. GABAPENTIN [Suspect]
     Indication: NEUROPATHY PERIPHERAL
  5. GABAPENTIN [Suspect]
  6. GABAPENTIN [Suspect]
  7. CARBAMAZEPINE [Concomitant]
     Dosage: UNK
  8. LEVETIRACETAM [Concomitant]
     Dosage: UNK
  9. PLAQUENIL [Concomitant]
     Dosage: UNK
  10. FENTANYL [Concomitant]
     Dosage: UNK
     Route: 062
  11. MORPHINE HYDROCHLORIDE [Concomitant]

REACTIONS (5)
  - CONVULSION [None]
  - DECREASED APPETITE [None]
  - DIARRHOEA [None]
  - PAIN [None]
  - WEIGHT DECREASED [None]
